FAERS Safety Report 9677027 (Version 1)
Quarter: 2013Q4

REPORT INFORMATION
  Report Type: Spontaneous
  Country: US (occurrence: US)
  Receive Date: 20131108
  Receipt Date: 20131108
  Transmission Date: 20140711
  Serious: No
  Sender: FDA-Public Use
  Company Number: US-BIOGENIDEC-2013BI105582

PATIENT
  Sex: Female

DRUGS (1)
  1. AVONEX [Suspect]
     Indication: MULTIPLE SCLEROSIS
     Route: 030
     Dates: start: 20061026, end: 2006

REACTIONS (4)
  - Memory impairment [Unknown]
  - Mental impairment [Unknown]
  - Pain [Not Recovered/Not Resolved]
  - Drug ineffective [Unknown]
